FAERS Safety Report 5104633-9 (Version None)
Quarter: 2006Q3

REPORT INFORMATION
  Report Type: 
  Country: None (occurrence: None)
  Receive Date: 20060912
  Receipt Date: 20060912
  Transmission Date: 20061208
  Serious: Yes (Hospitalization)
  Sender: FDA-Public Use
  Company Number: None

PATIENT
  Age: 62 Year
  Sex: Male
  Weight: 63 kg

DRUGS (6)
  1. BUPROPION HCL [Suspect]
     Indication: ANXIETY
     Dosage: 2X150 MG SA BID PO
     Route: 048
     Dates: start: 20060714, end: 20060820
  2. TRAZODONE HCL [Concomitant]
  3. LORAZEAM [Concomitant]
  4. OMEPRAZOLE [Concomitant]
  5. NUTRITION SUPL ENSURE PLUS/STRAWBERRU LIQ [Concomitant]
  6. VARDENAFIL HCL [Concomitant]

REACTIONS (1)
  - GRAND MAL CONVULSION [None]
